FAERS Safety Report 8591837-6 (Version None)
Quarter: 2012Q3

REPORT INFORMATION
  Report Type: 
  Country: None (occurrence: None)
  Receive Date: 20120814
  Receipt Date: 20120810
  Transmission Date: 20120928
  Serious: Yes (Death)
  Sender: FDA-Public Use
  Company Number: PHHY2010MX75481

PATIENT
  Sex: Male

DRUGS (2)
  1. SAXAGLIPTIN [Concomitant]
     Dosage: 1 DF, QD
     Route: 048
     Dates: start: 19830601, end: 20120501
  2. STALEVO 100 [Suspect]
     Indication: PARKINSON'S DISEASE
     Dosage: 3 DF, 3 TABLETS PER DAY
     Route: 048
     Dates: start: 20060101

REACTIONS (3)
  - HEAD INJURY [None]
  - FALL [None]
  - PNEUMONIA [None]
